FAERS Safety Report 6892315-2 (Version None)
Quarter: 2010Q3

REPORT INFORMATION
  Report Type: 
  Country: None (occurrence: None)
  Receive Date: 20100731
  Receipt Date: 20080317
  Transmission Date: 20110219
  Serious: No
  Sender: FDA-Public Use
  Company Number: US-PFIZER INC-2008024479

PATIENT
  Sex: Male
  Weight: 83.2 kg

DRUGS (4)
  1. NORVASC [Suspect]
     Indication: HYPERTENSION
     Dates: start: 20070101
  2. COREG [Concomitant]
  3. ACETYLSALICYLIC ACID SRT [Concomitant]
  4. DRUG, UNSPECIFIED [Concomitant]
     Indication: BLOOD CHOLESTEROL

REACTIONS (3)
  - ARTHRALGIA [None]
  - MUSCULAR WEAKNESS [None]
  - SENSATION OF HEAVINESS [None]
